FAERS Safety Report 10099460 (Version 1)
Quarter: 2014Q2

REPORT INFORMATION
  Report Type: Spontaneous
  Country: US (occurrence: US)
  Receive Date: 20140423
  Receipt Date: 20140423
  Transmission Date: 20141212
  Serious: No
  Sender: FDA-Public Use
  Company Number: US-PFIZER INC-2014111231

PATIENT
  Age: 33 Year
  Sex: Female
  Weight: 80.73 kg

DRUGS (7)
  1. DIAZEPAM [Suspect]
     Dosage: UNK
  2. OXYCODONE HYDROCHLORIDE [Suspect]
     Dosage: UNK
  3. BACLOFEN [Suspect]
     Dosage: UNK
  4. FLEXERIL [Suspect]
     Dosage: UNK
  5. DILAUDID [Suspect]
     Dosage: UNK
  6. HYDROCODONE [Suspect]
     Dosage: UNK
  7. KLONOPIN [Suspect]
     Dosage: UNK

REACTIONS (1)
  - Drug ineffective [Unknown]
